FAERS Safety Report 8627461 (Version 2)
Quarter: 2012Q4

REPORT INFORMATION
  Report Type: 
  Country: US (occurrence: US)
  Receive Date: 20120621
  Receipt Date: 20121108
  Transmission Date: 20130627
  Serious: Yes (Hospitalization)
  Sender: FDA-Public Use
  Company Number: US-BAYER-2012-058941

PATIENT
  Age: 30 Year
  Sex: Female
  Weight: 68 kg

DRUGS (11)
  1. YAZ [Suspect]
     Indication: CONTRACEPTION
     Dosage: UNK
     Dates: start: 200808, end: 200902
  2. YASMIN [Suspect]
     Indication: CONTRACEPTION
     Dosage: UNK
     Dates: start: 200506, end: 200711
  3. YASMIN [Suspect]
     Indication: CONTRACEPTION
     Dosage: UNK
     Dates: start: 200903, end: 200906
  4. OCELLA [Suspect]
     Indication: CONTRACEPTION
     Dosage: UNK
     Dates: start: 200907, end: 201008
  5. ANTIBIOTICS [Concomitant]
     Dosage: Various dates as needed
  6. ADVIL [Concomitant]
     Dosage: PRN
  7. MOTRIN [Concomitant]
     Dosage: PRN
  8. WOMEN^S 1 A DAY [Concomitant]
     Indication: MULTI-VITAMIN MAINTENANCE
     Dosage: UNK UNK, QD, Periodically
  9. PREVACID [Concomitant]
  10. PRILOSEC [Concomitant]
  11. GI COCKTAIL [Concomitant]

REACTIONS (6)
  - Cholecystitis chronic [None]
  - Gallbladder injury [None]
  - Injury [None]
  - Pain [None]
  - Pain [None]
  - Abdominal discomfort [None]
